FAERS Safety Report 4445925-6 (Version None)
Quarter: 2004Q3

REPORT INFORMATION
  Report Type: 
  Country: None (occurrence: None)
  Receive Date: 20040908
  Receipt Date: 20040908
  Transmission Date: 20050211
  Serious: Yes (Hospitalization)
  Sender: FDA-Public Use
  Company Number: None

PATIENT
  Age: 55 Year
  Sex: Male

DRUGS (7)
  1. LISINOPRIL [Suspect]
     Indication: HYPERTENSION
     Dosage: 5 MG QD
     Dates: start: 20000101
  2. METFORMIN HCL [Concomitant]
  3. NORTRIPTYLINE HCL [Concomitant]
  4. LOPID [Concomitant]
  5. LORTAB [Concomitant]
  6. NAPROXEN [Concomitant]
  7. FOSAMAX [Concomitant]

REACTIONS (1)
  - ANGIONEUROTIC OEDEMA [None]
